FAERS Safety Report 8557467-7 (Version None)
Quarter: 2012Q2

REPORT INFORMATION
  Report Type: 
  Country: None (occurrence: None)
  Receive Date: 20120418
  Receipt Date: 20090410
  Transmission Date: 20120825
  Serious: Yes (Life-Threatening, Hospitalization)
  Sender: FDA-Public Use
  Company Number: PHEH2009US03220

PATIENT
  Age: 56 Year
  Sex: Female

DRUGS (3)
  1. ZYRTEC [Concomitant]
  2. DIOVAN HCT [Suspect]
     Indication: HYPERTENSION
     Dosage: 160/12.5MG, QD, ORAL
     Route: 048
     Dates: start: 20070701
  3. PREMARIN [Concomitant]

REACTIONS (6)
  - PALPITATIONS [None]
  - DISTURBANCE IN ATTENTION [None]
  - CHEST DISCOMFORT [None]
  - DYSPNOEA [None]
  - HYPOKALAEMIA [None]
  - FEELING ABNORMAL [None]
